FAERS Safety Report 7120500-3 (Version None)
Quarter: 2010Q4

REPORT INFORMATION
  Report Type: 
  Country: None (occurrence: None)
  Receive Date: 20101119
  Receipt Date: 20101119
  Transmission Date: 20110411
  Serious: Yes (Hospitalization)
  Sender: FDA-Public Use
  Company Number: None

PATIENT
  Age: 63 Year
  Sex: Male
  Weight: 97 kg

DRUGS (2)
  1. DICLOFENAC SODIUM [Suspect]
     Dosage: 1 TAB BID PO
     Route: 048
     Dates: start: 20100305, end: 20101105
  2. CLOPIDOGREL [Suspect]
     Dosage: 75 MG EVERY DAY PO
     Route: 048
     Dates: start: 20100715

REACTIONS (9)
  - ANAEMIA [None]
  - CHEST PAIN [None]
  - DIZZINESS POSTURAL [None]
  - DYSPNOEA EXERTIONAL [None]
  - FAECES DISCOLOURED [None]
  - GASTRIC HAEMORRHAGE [None]
  - IRON DEFICIENCY [None]
  - MELAENA [None]
  - MICROCYTOSIS [None]
